FAERS Safety Report 10930801 (Version 1)
Quarter: 2015Q1

REPORT INFORMATION
  Report Type: Spontaneous
  Country: US (occurrence: US)
  Receive Date: 20150319
  Receipt Date: 20150319
  Transmission Date: 20150721
  Serious: No
  Sender: FDA-Public Use
  Company Number: US-BIOMARINAP-US-2015-105789

PATIENT
  Sex: Female
  Weight: 46 kg

DRUGS (1)
  1. NAGLAZYME [Suspect]
     Active Substance: GALSULFASE
     Indication: MUCOPOLYSACCHARIDOSIS VI
     Dosage: UNK, QW
     Route: 042
     Dates: start: 20130524

REACTIONS (4)
  - Nausea [Unknown]
  - Malaise [Unknown]
  - Ear infection [Unknown]
  - Oropharyngeal pain [Unknown]
